FAERS Safety Report 20468126 (Version 1)
Quarter: 2022Q1

REPORT INFORMATION
  Report Type: Spontaneous
  Country: US (occurrence: None)
  Receive Date: 20220211
  Receipt Date: 20220211
  Transmission Date: 20220423
  Serious: Yes (Other)
  Sender: FDA-Public Use
  Company Number: None

PATIENT
  Age: 59 Year
  Sex: Female
  Weight: 82.35 kg

DRUGS (10)
  1. IBRANCE [Suspect]
     Active Substance: PALBOCICLIB
     Indication: Breast cancer
     Dosage: FREQUENCY : DAILY;?
     Route: 048
     Dates: start: 20210623
  2. AMLODIPINE [Concomitant]
     Active Substance: AMLODIPINE BESYLATE
  3. ONDANSETRON [Concomitant]
     Active Substance: ONDANSETRON
  4. HYDROCORTISONE [Concomitant]
     Active Substance: HYDROCORTISONE
  5. HYDROXYCHLOROQUINE [Concomitant]
     Active Substance: HYDROXYCHLOROQUINE
  6. PAROXETINE [Concomitant]
     Active Substance: PAROXETINE
  7. OMEPRAZOLE [Concomitant]
     Active Substance: OMEPRAZOLE
  8. GABAPENTIN [Concomitant]
     Active Substance: GABAPENTIN
  9. TRAMADOL [Concomitant]
     Active Substance: TRAMADOL
  10. POTASSIUM CHLORIDE [Concomitant]
     Active Substance: POTASSIUM CHLORIDE

REACTIONS (2)
  - Pain [None]
  - Paraesthesia [None]

NARRATIVE: CASE EVENT DATE: 20220211
